FAERS Safety Report 15281002 (Version 1)
Quarter: 2018Q3

REPORT INFORMATION
  Report Type: Spontaneous
  Country: US (occurrence: US)
  Receive Date: 20180815
  Receipt Date: 20180815
  Transmission Date: 20181010
  Serious: Yes (Other)
  Sender: FDA-Public Use
  Company Number: US-PFIZER INC-2018326700

PATIENT
  Age: 68 Year
  Sex: Female

DRUGS (27)
  1. HUMIRA [Concomitant]
     Active Substance: ADALIMUMAB
     Dosage: UNK, WEEKLY
     Route: 058
  2. AMLODIPINE [Concomitant]
     Active Substance: AMLODIPINE BESYLATE
     Dosage: 5 MG, DAILY
     Route: 048
  3. AMLODIPINE/BENAZEPRIL [Concomitant]
     Active Substance: AMLODIPINE BESYLATE\BENAZEPRIL HYDROCHLORIDE
     Dosage: 1 DF, DAILY
     Route: 048
  4. VITAMIN B12 [Concomitant]
     Active Substance: CYANOCOBALAMIN
     Dosage: 1000 UG, MONTHLY
     Route: 030
  5. PENNSAID [Concomitant]
     Active Substance: DICLOFENAC SODIUM
     Indication: PAIN
     Dosage: 2 DF, AS NEEDED (TWICE A DAY AS NEEDED)
     Route: 061
  6. HALOBETASOL PROPIONATE. [Concomitant]
     Active Substance: HALOBETASOL PROPIONATE
     Dosage: UNK
  7. AMITRIPTYLINE [Concomitant]
     Active Substance: AMITRIPTYLINE
     Dosage: 1 TO 2 DF, ONCE DAILY (EVERY NIGHT AT BEDTIME)
     Route: 048
  8. GLIMEPIRIDE. [Concomitant]
     Active Substance: GLIMEPIRIDE
     Dosage: 4 MG, ONCE DAILY (WITH BREAKFAST)
     Route: 048
  9. METHOTREXATE SODIUM. [Concomitant]
     Active Substance: METHOTREXATE SODIUM
     Dosage: 20 MG, WEEKLY
     Route: 048
  10. CRESTOR [Concomitant]
     Active Substance: ROSUVASTATIN CALCIUM
     Dosage: 5 MG, THREE TIMES A WEEK
     Route: 048
  11. CALTRATE 600+D [Concomitant]
     Dosage: UNK, TWICE DAILY
  12. VENTOLIN [Concomitant]
     Active Substance: ALBUTEROL SULFATE
     Dosage: UNK, AS NEEDED
     Route: 055
  13. NEURONTIN [Concomitant]
     Active Substance: GABAPENTIN
     Dosage: 1 DF, FOUR TIMES DAILY
     Route: 048
  14. SYNTHROID [Concomitant]
     Active Substance: LEVOTHYROXINE SODIUM
     Dosage: 200 UG, ONCE DAILY
     Route: 048
  15. OTEZLA [Suspect]
     Active Substance: APREMILAST
     Dosage: 30 MG, TWICE DAILY
     Route: 048
  16. CENESTIN [Concomitant]
     Active Substance: ESTROGENS, CONJUGATED SYNTHETIC A
     Dosage: 0.9 MG, DAILY
  17. CYMBALTA [Concomitant]
     Active Substance: DULOXETINE HYDROCHLORIDE
     Dosage: 60 MG, DAILY (WITH 30 MG FOR A TOTAL OF 90 MG DAILY)
     Route: 048
  18. HYDROCHLOROTHIAZIDE. [Concomitant]
     Active Substance: HYDROCHLOROTHIAZIDE
     Dosage: 12.5 MG, DAILY
     Route: 048
  19. MEDROL [Concomitant]
     Active Substance: METHYLPREDNISOLONE
     Dosage: 4 MG, UNK
  20. XELJANZ XR [Suspect]
     Active Substance: TOFACITINIB CITRATE
     Dosage: 11 MG, UNK
  21. ACETAZOLAMIDE. [Concomitant]
     Active Substance: ACETAZOLAMIDE
     Dosage: 250 MG, TWICE DAILY
     Route: 048
  22. VITAMIN D3 [Concomitant]
     Active Substance: CHOLECALCIFEROL
     Dosage: 3000 IU, ONCE DAILY
     Route: 048
  23. CYMBALTA [Concomitant]
     Active Substance: DULOXETINE HYDROCHLORIDE
     Dosage: 30 MG, DAILY (WITH 60 MG FOR A TOTAL OF 90 MG DAILY)
  24. TOUJEO [Concomitant]
     Active Substance: INSULIN GLARGINE
     Dosage: 40 IU, DAILY
     Route: 058
  25. PROTONIX [Concomitant]
     Active Substance: PANTOPRAZOLE SODIUM
     Dosage: 40 MG, ONCE DAILY (EVERY 24 HOURS)
  26. BENAZEPRIL [Concomitant]
     Active Substance: BENAZEPRIL HYDROCHLORIDE
     Dosage: 20 MG, TWICE DAILY
     Route: 048
  27. VICTOZA [Concomitant]
     Active Substance: LIRAGLUTIDE
     Dosage: 1.8 MG, DAILY
     Route: 058

REACTIONS (17)
  - Gastrointestinal haemorrhage [Unknown]
  - Joint swelling [Unknown]
  - Product use issue [Unknown]
  - Rash [Unknown]
  - Arthralgia [Unknown]
  - Dry mouth [Unknown]
  - Vomiting [Unknown]
  - Musculoskeletal stiffness [Unknown]
  - Dyspnoea [Unknown]
  - Condition aggravated [Unknown]
  - Blindness [Unknown]
  - Chest pain [Unknown]
  - Abdominal pain [Unknown]
  - Diarrhoea [Unknown]
  - Pyrexia [Unknown]
  - Cognitive disorder [Unknown]
  - Nausea [Unknown]
